FAERS Safety Report 13840807 (Version 2)
Quarter: 2017Q3

REPORT INFORMATION
  Report Type: Spontaneous
  Country: US (occurrence: US)
  Receive Date: 20170807
  Receipt Date: 20170817
  Transmission Date: 20171127
  Serious: Yes (Other)
  Sender: FDA-Public Use
  Company Number: US-JNJFOC-20170803714

PATIENT
  Sex: Female

DRUGS (5)
  1. NORTRIPTYLINE [Suspect]
     Active Substance: NORTRIPTYLINE
     Indication: HEADACHE
     Route: 065
     Dates: start: 2012
  2. FIORICET [Suspect]
     Active Substance: ACETAMINOPHEN\BUTALBITAL\CAFFEINE
     Indication: HEADACHE
     Route: 065
     Dates: start: 20120417, end: 20120517
  3. BABY ASPIRIN [Concomitant]
     Active Substance: ASPIRIN
     Route: 065
  4. TRAMADOL. [Suspect]
     Active Substance: TRAMADOL
     Indication: PAIN
     Route: 065
     Dates: start: 20120417, end: 20120517
  5. VITAMIN B12 [Concomitant]
     Active Substance: CYANOCOBALAMIN
     Route: 060

REACTIONS (21)
  - Ear discomfort [Unknown]
  - Indifference [Unknown]
  - Feeling hot [Unknown]
  - Nodule [Unknown]
  - Agitation [Unknown]
  - Emotional distress [Unknown]
  - Balance disorder [Unknown]
  - Blood cholesterol abnormal [Unknown]
  - Nausea [Unknown]
  - Dizziness [Unknown]
  - Disorientation [Unknown]
  - Dyspnoea [Unknown]
  - Eye pain [Unknown]
  - Anxiety [Unknown]
  - Blood test abnormal [Unknown]
  - Thyroid function test abnormal [Unknown]
  - Blood pressure increased [Unknown]
  - Nerve injury [Unknown]
  - Pain [Unknown]
  - Road traffic accident [Unknown]
  - Arthritis [Unknown]

NARRATIVE: CASE EVENT DATE: 2012
